FAERS Safety Report 8419136-3 (Version None)
Quarter: 2012Q2

REPORT INFORMATION
  Report Type: 
  Country: None (occurrence: None)
  Receive Date: 20120607
  Receipt Date: 20120601
  Transmission Date: 20120825
  Serious: Yes (Other)
  Sender: FDA-Public Use
  Company Number: US-PFIZER INC-2012133853

PATIENT
  Sex: Female

DRUGS (1)
  1. CYTOTEC [Suspect]
     Indication: ABORTION
     Dosage: UNK
     Route: 048
     Dates: start: 20100130

REACTIONS (16)
  - PAIN IN EXTREMITY [None]
  - AURICULAR SWELLING [None]
  - SWELLING FACE [None]
  - TREMOR [None]
  - DIZZINESS [None]
  - PAIN [None]
  - VISION BLURRED [None]
  - DRUG INEFFECTIVE FOR UNAPPROVED INDICATION [None]
  - DEAFNESS UNILATERAL [None]
  - HEADACHE [None]
  - HYPOAESTHESIA [None]
  - PYREXIA [None]
  - HYPOACUSIS [None]
  - DISTURBANCE IN ATTENTION [None]
  - URINARY INCONTINENCE [None]
  - NECK PAIN [None]
